FAERS Safety Report 5426693-8 (Version None)
Quarter: 2007Q3

REPORT INFORMATION
  Report Type: 
  Country: None (occurrence: None)
  Receive Date: 20070827
  Receipt Date: 20070815
  Transmission Date: 20080115
  Serious: Yes (Other)
  Sender: FDA-Public Use
  Company Number: US-PFIZER INC-2007060857

PATIENT
  Sex: Female
  Weight: 46.3 kg

DRUGS (4)
  1. CHANTIX [Suspect]
     Indication: SMOKING CESSATION THERAPY
     Route: 048
     Dates: start: 20070615, end: 20070712
  2. XANAX [Suspect]
  3. RANITIDINE [Concomitant]
  4. LEXAPRO [Concomitant]

REACTIONS (5)
  - ANXIETY [None]
  - CLAUSTROPHOBIA [None]
  - DISTURBANCE IN ATTENTION [None]
  - INSOMNIA [None]
  - PANIC ATTACK [None]
